FAERS Safety Report 10170187 (Version 4)
Quarter: 2014Q3

REPORT INFORMATION
  Report Type: Spontaneous
  Country: JP (occurrence: JP)
  Receive Date: 20140513
  Receipt Date: 20140811
  Transmission Date: 20150326
  Serious: Yes (Death, Life-Threatening, Hospitalization, Other)
  Sender: FDA-Public Use
  Company Number: JP-CELGENEUS-087-21880-14051487

PATIENT
  Age: 64 Year
  Sex: Male
  Weight: 61 kg

DRUGS (11)
  1. BARACLUDE [Concomitant]
     Active Substance: ENTECAVIR
     Indication: CHRONIC HEPATITIS B
     Dosage: 1 DOSAGE FORMS
     Route: 048
     Dates: start: 20130621, end: 20140317
  2. LENADEX [Suspect]
     Active Substance: DEXAMETHASONE ACETATE
     Indication: PLASMA CELL MYELOMA
     Dosage: 36 MILLIGRAM
     Route: 048
     Dates: start: 20130629, end: 20131226
  3. REVLIMID [Suspect]
     Active Substance: LENALIDOMIDE
     Indication: PLASMA CELL MYELOMA
     Dosage: 25 MILLIGRAM
     Route: 048
     Dates: start: 20130122, end: 20140225
  4. ALEVIATIN [Concomitant]
     Active Substance: PHENYTOIN SODIUM
     Indication: PRODUCT USED FOR UNKNOWN INDICATION
     Dosage: 200 MILLIGRAM
     Route: 048
     Dates: start: 20140215, end: 20140317
  5. RIVOTRIL [Concomitant]
     Active Substance: CLONAZEPAM
     Indication: PRODUCT USED FOR UNKNOWN INDICATION
     Dosage: .2 MILLIGRAM
     Route: 048
     Dates: start: 20140120, end: 20140317
  6. IRRADIATED RED CELLS CONC-LEUK REDUCED [Concomitant]
     Indication: PRODUCT USED FOR UNKNOWN INDICATION
     Route: 065
  7. LENADEX [Suspect]
     Active Substance: DEXAMETHASONE ACETATE
     Route: 065
     Dates: start: 20140110
  8. DOXORUBICIN HCL [Concomitant]
     Active Substance: DOXORUBICIN HYDROCHLORIDE
     Indication: PLASMA CELL MYELOMA
     Route: 065
     Dates: start: 20140110
  9. KEPPRA [Concomitant]
     Active Substance: LEVETIRACETAM
     Indication: PRODUCT USED FOR UNKNOWN INDICATION
     Dosage: 2000 MILLIGRAM
     Route: 048
     Dates: start: 20140120, end: 20140317
  10. VINCRISTINE SULFATE. [Concomitant]
     Active Substance: VINCRISTINE SULFATE
     Indication: PLASMA CELL MYELOMA
     Route: 065
     Dates: start: 20140110
  11. PLATELET CONCENTRATE (IRRADIATED) [Concomitant]
     Indication: PRODUCT USED FOR UNKNOWN INDICATION
     Route: 065

REACTIONS (5)
  - Sepsis [Fatal]
  - White blood cell count decreased [Not Recovered/Not Resolved]
  - Amylase increased [Recovering/Resolving]
  - Tumour lysis syndrome [Recovered/Resolved]
  - Platelet count decreased [Not Recovered/Not Resolved]

NARRATIVE: CASE EVENT DATE: 20140115
